FAERS Safety Report 9733611 (Version 1)
Quarter: 2013Q4

REPORT INFORMATION
  Report Type: Spontaneous
  Country: US (occurrence: US)
  Receive Date: 20131205
  Receipt Date: 20131205
  Transmission Date: 20140711
  Serious: No
  Sender: FDA-Public Use
  Company Number: US-TEVA-446248USA

PATIENT
  Age: 68 Year
  Sex: Male
  Weight: 93.07 kg

DRUGS (12)
  1. PROAIR HFA [Suspect]
     Indication: BRONCHITIS
     Dates: start: 20131119, end: 20131120
  2. DEX-PAK [Concomitant]
     Indication: BRONCHITIS
  3. MEN^S SILVER PLUS VITAMINS [Concomitant]
     Indication: VITAMIN SUPPLEMENTATION
  4. ASPIRIN [Concomitant]
     Indication: PROPHYLAXIS
  5. TAMSULOSIN [Concomitant]
     Indication: BENIGN PROSTATIC HYPERPLASIA
  6. DIGOXIN [Concomitant]
     Indication: CARDIAC DISORDER
  7. DILTIAZEM [Concomitant]
     Indication: HYPERTENSION
  8. FENOFIBRATE [Concomitant]
     Indication: CONSTIPATION
  9. FAMOTIDINE [Concomitant]
     Indication: GASTROOESOPHAGEAL REFLUX DISEASE
  10. CLORAZEPATE [Concomitant]
     Indication: SLEEP DISORDER
  11. SERTRALINE [Concomitant]
     Indication: DEPRESSION
  12. PANTOPRAZOLE [Concomitant]
     Indication: GASTROOESOPHAGEAL REFLUX DISEASE

REACTIONS (3)
  - Dysphagia [Recovered/Resolved]
  - Dyspnoea [Recovered/Resolved]
  - Wrong technique in drug usage process [Unknown]
